FAERS Safety Report 8103279-8 (Version None)
Quarter: 2011Q4

REPORT INFORMATION
  Report Type: 
  Country: None (occurrence: None)
  Receive Date: 20111222
  Receipt Date: 20110916
  Transmission Date: 20120403
  Serious: Yes (Hospitalization)
  Sender: FDA-Public Use
  Company Number: UTC-010286

PATIENT
  Age: 48 Year
  Sex: Female
  Weight: 95 kg

DRUGS (2)
  1. TYVASO [Suspect]
     Indication: COR PULMONALE CHRONIC
     Dosage: 72 MCG (18  MCG, 4 IN 1 D), INHALATION
     Route: 055
     Dates: start: 20110803
  2. REVATIO [Concomitant]

REACTIONS (1)
  - URINARY TRACT INFECTION [None]
